FAERS Safety Report 7559123-0 (Version None)
Quarter: 2011Q2

REPORT INFORMATION
  Report Type: 
  Country: None (occurrence: None)
  Receive Date: 20110621
  Receipt Date: 20110519
  Transmission Date: 20111010
  Serious: No
  Sender: FDA-Public Use
  Company Number: US-MYLANLABS-2011S1007169

PATIENT
  Age: 77 Year
  Sex: Male

DRUGS (3)
  1. NIFEDIPINE [Suspect]
     Indication: BLOOD PRESSURE INCREASED
     Route: 048
     Dates: start: 20101201, end: 20110301
  2. WARFARIN SODIUM [Concomitant]
  3. ANTIARRHYTHMICS, CLASS IB [Concomitant]

REACTIONS (5)
  - BLOOD CREATININE INCREASED [None]
  - HYPERTENSION [None]
  - MEDICATION RESIDUE [None]
  - WRONG TECHNIQUE IN DRUG USAGE PROCESS [None]
  - DRUG INEFFECTIVE [None]
